FAERS Safety Report 4772671-1 (Version None)
Quarter: 2005Q3

REPORT INFORMATION
  Report Type: 
  Country: None (occurrence: None)
  Receive Date: 20050914
  Receipt Date: 20041111
  Transmission Date: 20060218
  Serious: Yes (Hospitalization)
  Sender: FDA-Public Use
  Company Number: 163-20785-04110285

PATIENT
  Age: 89 Year
  Sex: Male

DRUGS (2)
  1. THALOMID [Suspect]
     Indication: MYELODYSPLASTIC SYNDROME
     Dosage: 100 MG, DAILY, ORAL
     Route: 048
     Dates: start: 20030401, end: 20040801
  2. PROCRIT [Concomitant]

REACTIONS (5)
  - CARDIAC FAILURE CONGESTIVE [None]
  - HYPOAESTHESIA [None]
  - OEDEMA [None]
  - PARAESTHESIA [None]
  - SOMNOLENCE [None]
